FAERS Safety Report 15014354 (Version 3)
Quarter: 2018Q2

REPORT INFORMATION
  Report Type: Report from Study
  Country: US (occurrence: US)
  Receive Date: 20180615
  Receipt Date: 20180628
  Transmission Date: 20180711
  Serious: Yes (Hospitalization)
  Sender: FDA-Public Use
  Company Number: US-ROCHE-2138634

PATIENT
  Age: 60 Year
  Sex: Male
  Weight: 85.35 kg

DRUGS (2)
  1. OCREVUS [Suspect]
     Active Substance: OCRELIZUMAB
     Dosage: SECOND OCREVUS FULL DOSE
     Route: 065
     Dates: start: 201806, end: 201806
  2. OCREVUS [Suspect]
     Active Substance: OCRELIZUMAB
     Indication: RELAPSING MULTIPLE SCLEROSIS
     Dosage: ONGOING: UNKNOWN
     Route: 065

REACTIONS (6)
  - Paraesthesia [Not Recovered/Not Resolved]
  - Muscular weakness [Unknown]
  - Cerebrovascular accident [Not Recovered/Not Resolved]
  - Fall [Unknown]
  - Hypoaesthesia [Unknown]
  - Gait disturbance [Not Recovered/Not Resolved]

NARRATIVE: CASE EVENT DATE: 201806
